FAERS Safety Report 17349914 (Version 4)
Quarter: 2022Q1

REPORT INFORMATION
  Report Type: Report from Study
  Country: US (occurrence: None)
  Receive Date: 20200130
  Receipt Date: 20220228
  Transmission Date: 20220423
  Serious: Yes (Other)
  Sender: FDA-Public Use
  Company Number: US-ROCHE-2534607

PATIENT
  Age: 67 Year
  Sex: Female
  Weight: 86.6 kg

DRUGS (4)
  1. ATEZOLIZUMAB [Suspect]
     Active Substance: ATEZOLIZUMAB
     Indication: Non-small cell lung cancer
     Dosage: ON 06/DEC/2019, RECEIVED MOST RECENT DOSE.
     Route: 042
     Dates: start: 20190118
  2. BEVACIZUMAB [Suspect]
     Active Substance: BEVACIZUMAB
     Indication: Non-small cell lung cancer
     Dosage: ON 30/DEC/2019, RECEIVED MOST RECENT DOSE.
     Route: 042
     Dates: start: 20190118
  3. CARBOPLATIN [Suspect]
     Active Substance: CARBOPLATIN
     Indication: Non-small cell lung cancer
     Dosage: DOSE: 5AUC?ON 22/MAR/2019, RECEIVED MOST RECENT DOSE.
     Route: 042
     Dates: start: 20190118
  4. PEMETREXED [Suspect]
     Active Substance: PEMETREXED
     Indication: Non-small cell lung cancer
     Dosage: ON 02/AUG/2019, RECEIVED MOST RECENT DOSE.
     Route: 042
     Dates: start: 20190118

REACTIONS (2)
  - Pancreatitis [Recovered/Resolved]
  - Lipase increased [Not Recovered/Not Resolved]

NARRATIVE: CASE EVENT DATE: 20200121
